FAERS Safety Report 15234230 (Version 1)
Quarter: 2018Q3

REPORT INFORMATION
  Report Type: Spontaneous
  Country: US (occurrence: US)
  Receive Date: 20180803
  Receipt Date: 20180803
  Transmission Date: 20181010
  Serious: Yes (Hospitalization)
  Sender: FDA-Public Use
  Company Number: US-BEH-2018093302

PATIENT
  Age: 36 Year
  Sex: Female

DRUGS (1)
  1. HAEMATE P [Suspect]
     Active Substance: ANTIHEMOPHILIC FACTOR HUMAN
     Indication: VON WILLEBRAND^S DISEASE
     Dosage: 2565 IU, PRN
     Route: 042
     Dates: start: 20180717

REACTIONS (1)
  - Oophoritis [Unknown]

NARRATIVE: CASE EVENT DATE: 201807
